FAERS Safety Report 15404818 (Version 1)
Quarter: 2018Q3

REPORT INFORMATION
  Report Type: Spontaneous
  Country: US (occurrence: US)
  Receive Date: 20180919
  Receipt Date: 20180919
  Transmission Date: 20181010
  Serious: No
  Sender: FDA-Public Use
  Company Number: US-UNITED THERAPEUTICS-UNT-2018-014880

PATIENT
  Age: 66 Year
  Sex: Female
  Weight: 89.8 kg

DRUGS (3)
  1. REMODULIN [Suspect]
     Active Substance: TREPROSTINIL
     Indication: PULMONARY ARTERIAL HYPERTENSION
     Dosage: 0.034 ?G/KG, CONTINUING
     Route: 058
     Dates: start: 20050310
  2. ADCIRCA [Concomitant]
     Active Substance: TADALAFIL
     Indication: PRODUCT USED FOR UNKNOWN INDICATION
     Route: 065
  3. OPSUMIT [Concomitant]
     Active Substance: MACITENTAN
     Indication: PRODUCT USED FOR UNKNOWN INDICATION
     Route: 065

REACTIONS (6)
  - Fatigue [Unknown]
  - Throat tightness [Unknown]
  - Eructation [Unknown]
  - Device alarm issue [Unknown]
  - Dyspnoea exertional [Unknown]
  - Malaise [Unknown]

NARRATIVE: CASE EVENT DATE: 20180908
